FAERS Safety Report 19673219 (Version 1)
Quarter: 2021Q3

REPORT INFORMATION
  Report Type: Spontaneous
  Country: US (occurrence: US)
  Receive Date: 20210809
  Receipt Date: 20210809
  Transmission Date: 20211014
  Serious: No
  Sender: FDA-Public Use
  Company Number: US-DRREDDYS-SPO/USA/21/0138574

PATIENT
  Sex: Female

DRUGS (1)
  1. FAMOTIDINE 20 MG OTC [Suspect]
     Active Substance: FAMOTIDINE
     Indication: DYSPEPSIA
     Dosage: 1 TO 2 TABLETS PER DAY
     Route: 048
     Dates: start: 2021

REACTIONS (1)
  - Wrong technique in product usage process [Unknown]
